FAERS Safety Report 7432172-9 (Version None)
Quarter: 2011Q2

REPORT INFORMATION
  Report Type: 
  Country: None (occurrence: None)
  Receive Date: 20110422
  Receipt Date: 20110415
  Transmission Date: 20111010
  Serious: Yes (Other)
  Sender: FDA-Public Use
  Company Number: US-SANOFI-AVENTIS-2011SA009190

PATIENT
  Age: 57 Year
  Sex: Male

DRUGS (4)
  1. CEFTRIAXONE [Suspect]
     Route: 041
  2. URSODIOL [Concomitant]
     Route: 065
  3. RILUTEK [Suspect]
     Indication: AMYOTROPHIC LATERAL SCLEROSIS
     Route: 048
     Dates: start: 20090101
  4. CEFTRIAXONE [Suspect]
     Route: 041
     Dates: start: 20100101

REACTIONS (9)
  - ANGINA PECTORIS [None]
  - ARTHRALGIA [None]
  - CHEST PAIN [None]
  - ARTERIAL OCCLUSIVE DISEASE [None]
  - HUNGER [None]
  - HYPERTENSION [None]
  - FEELING ABNORMAL [None]
  - APATHY [None]
  - CHOLELITHIASIS [None]
